FAERS Safety Report 26028988 (Version 1)
Quarter: 2025Q4

REPORT INFORMATION
  Report Type: Spontaneous
  Country: GB (occurrence: GB)
  Receive Date: 20251112
  Receipt Date: 20251112
  Transmission Date: 20260119
  Serious: Yes (Life-Threatening, Other)
  Sender: TEVA
  Company Number: None

PATIENT
  Age: 30 Year
  Sex: Female
  Weight: 60 kg

DRUGS (2)
  1. SPIRONOLACTONE [Suspect]
     Active Substance: SPIRONOLACTONE
     Indication: Acne
     Dosage: ONCE A DAY
     Route: 065
     Dates: start: 20250719, end: 20251031
  2. MIRENA [Concomitant]
     Active Substance: LEVONORGESTREL
     Indication: Adverse drug reaction
     Dates: start: 20241201

REACTIONS (2)
  - Suicidal ideation [Recovering/Resolving]
  - Medication error [Unknown]

NARRATIVE: CASE EVENT DATE: 20250815
